FAERS Safety Report 16932001 (Version 3)
Quarter: 2022Q4

REPORT INFORMATION
  Report Type: Other
  Country: ES (occurrence: ES)
  Receive Date: 20191017
  Receipt Date: 20221108
  Transmission Date: 20230112
  Serious: Yes (Death, Hospitalization)
  Sender: FDA-Public Use
  Company Number: ES-AUROBINDO-AUR-APL-2019-061186

PATIENT
  Age: 67 Year
  Sex: Male
  Weight: 66 kg

DRUGS (5)
  1. CAPECITABINE [Suspect]
     Active Substance: CAPECITABINE
     Indication: Adenocarcinoma of colon
     Route: 048
     Dates: start: 20171030
  2. OXALIPLATIN [Suspect]
     Active Substance: OXALIPLATIN
     Indication: Adenocarcinoma of colon
     Dosage: UNK
     Route: 065
     Dates: start: 2017
  3. DOMPERIDONE [Concomitant]
     Active Substance: DOMPERIDONE
     Indication: Prophylaxis of nausea and vomiting
     Route: 048
     Dates: start: 20171024, end: 20171112
  4. GRANISETRON [Concomitant]
     Active Substance: GRANISETRON
     Indication: Prophylaxis of nausea and vomiting
     Route: 048
     Dates: start: 20171024, end: 20171112
  5. MIRTAZAPINE [Concomitant]
     Active Substance: MIRTAZAPINE
     Route: 048
     Dates: start: 20171106, end: 20171112

REACTIONS (26)
  - Diarrhoea [Unknown]
  - Abdominal distension [Unknown]
  - Hypovolaemic shock [Fatal]
  - Vomiting [Unknown]
  - Multiple organ dysfunction syndrome [Fatal]
  - Gastrointestinal haemorrhage [Unknown]
  - Gastric dilatation [Unknown]
  - Haemorrhage [Unknown]
  - Tachypnoea [Unknown]
  - Haematemesis [Unknown]
  - Mucosal disorder [Unknown]
  - Somnolence [Unknown]
  - Oesophagitis [Unknown]
  - Dehydration [Unknown]
  - Tachycardia [Unknown]
  - Hyperaemia [Unknown]
  - Oesophageal haemorrhage [Unknown]
  - Enteritis [Unknown]
  - Thrombosis [Unknown]
  - Renal failure [Unknown]
  - Asthenia [Unknown]
  - Intestinal dilatation [Unknown]
  - Toxicity to various agents [Unknown]
  - Condition aggravated [Unknown]
  - Rectal haemorrhage [Unknown]
  - Anaemia [Unknown]

NARRATIVE: CASE EVENT DATE: 20170101
